FAERS Safety Report 23878902 (Version 1)
Quarter: 2024Q2

REPORT INFORMATION
  Report Type: Spontaneous
  Country: DE (occurrence: DE)
  Receive Date: 20240521
  Receipt Date: 20240521
  Transmission Date: 20240716
  Serious: Yes (Other)
  Sender: FDA-Public Use
  Company Number: None

PATIENT
  Age: 43 Year
  Sex: Female
  Weight: 58.5 kg

DRUGS (4)
  1. METOCLOPRAMIDE [Suspect]
     Active Substance: METOCLOPRAMIDE
     Indication: Prophylaxis of nausea and vomiting
     Dosage: UNKNOWN DOSAGE
     Route: 042
     Dates: start: 20240423, end: 20240423
  2. NATROVIT [Concomitant]
     Indication: Product used for unknown indication
     Dosage: POWDER FOR A CONCENTRATE FOR PREPARING AN INFUSION SOLUTION
     Route: 065
  3. ELECTROLYTES NOS\MINERALS [Concomitant]
     Active Substance: ELECTROLYTES NOS\MINERALS
     Indication: Product used for unknown indication
     Route: 065
  4. Jonosteril [Concomitant]
     Indication: Product used for unknown indication
     Route: 065

REACTIONS (3)
  - Hallucinations, mixed [Recovered/Resolved]
  - Confusional state [Recovered/Resolved]
  - Aggression [Recovered/Resolved]

NARRATIVE: CASE EVENT DATE: 20240423
